FAERS Safety Report 5310789-5 (Version None)
Quarter: 2007Q2

REPORT INFORMATION
  Report Type: 
  Country: None (occurrence: None)
  Receive Date: 20070428
  Receipt Date: 20070411
  Transmission Date: 20071010
  Serious: Yes (Death, Hospitalization)
  Sender: FDA-Public Use
  Company Number: PFIZER INC-2007018909

PATIENT
  Age: 41 Year
  Sex: Male

DRUGS (1)
  1. EXUBERA [Suspect]
     Indication: DIABETES MELLITUS INSULIN-DEPENDENT

REACTIONS (2)
  - CARDIAC ARREST [None]
  - HYPOGLYCAEMIA [None]
